FAERS Safety Report 4326397-9 (Version None)
Quarter: 2004Q1

REPORT INFORMATION
  Report Type: 
  Country: None (occurrence: None)
  Receive Date: 20040330
  Receipt Date: 20040322
  Transmission Date: 20041129
  Serious: Yes (Other)
  Sender: FDA-Public Use
  Company Number: PHBS2004NZ04010

PATIENT
  Age: 50 Year
  Sex: Male

DRUGS (3)
  1. LAMISIL [Suspect]
     Indication: NAIL TINEA
     Dosage: 250 MG/DAY
     Route: 048
     Dates: start: 20040203, end: 20040224
  2. DOCUSATE SODIUM W/SENNA [Concomitant]
     Route: 048
  3. BRUFEN ^KNOLL^ [Concomitant]
     Dates: start: 20040224

REACTIONS (12)
  - ABDOMINAL DISTENSION [None]
  - ABDOMINAL PAIN [None]
  - ABDOMINAL PAIN UPPER [None]
  - ANOREXIA [None]
  - C-REACTIVE PROTEIN INCREASED [None]
  - CONSTIPATION [None]
  - DYSPEPSIA [None]
  - EPISTAXIS [None]
  - JOINT SWELLING [None]
  - RASH ERYTHEMATOUS [None]
  - RED BLOOD CELL SEDIMENTATION RATE INCREASED [None]
  - VASCULITIC RASH [None]
